FAERS Safety Report 9209561 (Version 1)
Quarter: 2013Q1

REPORT INFORMATION
  Report Type: Spontaneous
  Country: US (occurrence: None)
  Receive Date: 20120820
  Receipt Date: 20120820
  Transmission Date: 20140127
  Serious: No
  Sender: FDA-Public Use
  Company Number: 1000030432

PATIENT
  Age: 80 Year
  Sex: Female

DRUGS (5)
  1. VIIBRYD [Suspect]
     Route: 048
     Dates: start: 201204, end: 201204
  2. ASPIRIN (ACETYLSALYCYLIC ACID) (ACETYLSALCYLIC ACID) [Concomitant]
  3. NEXIUM (ESOMEPRAZOLE) (ESOMEPRAZOLE) [Concomitant]
  4. VICODIN (HYDROCODONE,ACETOMINOPHEN) (HYDROCODONE, ACETAMINOPHEN) [Suspect]
  5. WATER PILL (NOS) (WATER PILL (NOS)) (WATER PILL (NOS) ) [Concomitant]

REACTIONS (4)
  - Feeling abnormal [None]
  - Tremor [None]
  - Affective disorder [None]
  - Off label use [None]
